FAERS Safety Report 14412356 (Version 1)
Quarter: 2018Q1

REPORT INFORMATION
  Report Type: Spontaneous
  Country: US (occurrence: US)
  Receive Date: 20180118
  Receipt Date: 20180118
  Transmission Date: 20180509
  Serious: No
  Sender: FDA-Public Use
  Company Number: None

PATIENT
  Sex: Female
  Weight: 60.75 kg

DRUGS (20)
  1. MONTELUKAST SOD [Concomitant]
     Active Substance: MONTELUKAST SODIUM
  2. SERTRALINE HCL [Concomitant]
     Active Substance: SERTRALINE HYDROCHLORIDE
  3. FOLIC ACID. [Concomitant]
     Active Substance: FOLIC ACID
  4. DILTIAZEM 24 HR ER [Concomitant]
  5. IBUPROFEN. [Concomitant]
     Active Substance: IBUPROFEN
  6. PANTOPRAZOLE [Concomitant]
     Active Substance: PANTOPRAZOLE
  7. LEVOTHYROXINE. [Concomitant]
     Active Substance: LEVOTHYROXINE
  8. MODAFINIL. [Concomitant]
     Active Substance: MODAFINIL
  9. ALBUTEROL SULFATE. [Concomitant]
     Active Substance: ALBUTEROL SULFATE
  10. PENTOSAN POLYSULFATE SODIUM [Concomitant]
     Active Substance: PENTOSAN POLYSULFATE SODIUM
  11. LORAZEPAM. [Concomitant]
     Active Substance: LORAZEPAM
  12. SUMPATRIPTAN SUCC [Concomitant]
  13. METHYLPHENIDATE ER 36 MG TAB [Suspect]
     Active Substance: METHYLPHENIDATE HYDROCHLORIDE
     Indication: ATTENTION DEFICIT/HYPERACTIVITY DISORDER
     Dosage: ?          QUANTITY:1 TABLET(S);?
     Route: 048
     Dates: start: 20171211, end: 20171213
  14. MICROGESTIN FE [Concomitant]
     Active Substance: ETHINYL ESTRADIOL\FERROUS FUMARATE\NORETHINDRONE ACETATE
  15. PHENASOPYRIDINE [Concomitant]
  16. MIRABEGRON [Concomitant]
     Active Substance: MIRABEGRON
  17. METHOTREXATE. [Concomitant]
     Active Substance: METHOTREXATE
  18. ODNASTRON HCL [Concomitant]
  19. CETIRIZINE [Concomitant]
     Active Substance: CETIRIZINE HYDROCHLORIDE
  20. PROMETHAZINE [Concomitant]
     Active Substance: PROMETHAZINE\PROMETHAZINE HYDROCHLORIDE

REACTIONS (6)
  - Disturbance in attention [None]
  - Alopecia [None]
  - Drug effect decreased [None]
  - Product substitution issue [None]
  - Hypersomnia [None]
  - Drug intolerance [None]

NARRATIVE: CASE EVENT DATE: 20180111
